FAERS Safety Report 17566745 (Version 6)
Quarter: 2020Q3

REPORT INFORMATION
  Report Type: Report from Study
  Country: US (occurrence: US)
  Receive Date: 20200320
  Receipt Date: 20200725
  Transmission Date: 20201102
  Serious: No
  Sender: FDA-Public Use
  Company Number: NVSC2020US072947

PATIENT
  Sex: Female

DRUGS (1)
  1. COSENTYX [Suspect]
     Active Substance: SECUKINUMAB
     Indication: PSORIATIC ARTHROPATHY
     Dosage: 300 MG, QMO
     Route: 065

REACTIONS (5)
  - Administration site discolouration [Unknown]
  - Therapeutic product effect delayed [Recovering/Resolving]
  - Injection site bruising [Recovering/Resolving]
  - Psoriasis [Recovering/Resolving]
  - Injection site pain [Recovering/Resolving]
